FAERS Safety Report 17601700 (Version 1)
Quarter: 2020Q1

REPORT INFORMATION
  Report Type: Report from Study
  Country: CA (occurrence: CA)
  Receive Date: 20200330
  Receipt Date: 20200330
  Transmission Date: 20200409
  Serious: Yes (Hospitalization)
  Sender: FDA-Public Use
  Company Number: CA-ACTELION-A-NJ2020-201167

PATIENT
  Sex: Female
  Weight: 71.66 kg

DRUGS (1)
  1. OPSUMIT [Suspect]
     Active Substance: MACITENTAN
     Indication: PULMONARY ARTERIAL HYPERTENSION
     Dosage: 10 MG
     Route: 048
     Dates: start: 20190702, end: 20200318

REACTIONS (3)
  - Bronchitis [Not Recovered/Not Resolved]
  - Hospitalisation [Unknown]
  - Cough [Not Recovered/Not Resolved]
